FAERS Safety Report 14206523 (Version 5)
Quarter: 2018Q1

REPORT INFORMATION
  Report Type: Report from Study
  Country: FR (occurrence: FR)
  Receive Date: 20171120
  Receipt Date: 20180312
  Transmission Date: 20180508
  Serious: Yes (Hospitalization)
  Sender: FDA-Public Use
  Company Number: FR-B.I. PHARMACEUTICALS,INC./RIDGEFIELD-2017-BI-042249

PATIENT
  Age: 62 Year
  Sex: Male
  Weight: 79 kg

DRUGS (14)
  1. CISPLATIN. [Concomitant]
     Active Substance: CISPLATIN
     Dosage: 56.25 MG/M?
     Route: 065
     Dates: start: 20170608
  2. CISPLATIN. [Concomitant]
     Active Substance: CISPLATIN
     Dosage: 75 MG/M?
     Route: 065
     Dates: start: 20170518
  3. PEMETREXED. [Concomitant]
     Active Substance: PEMETREXED
     Dosage: 375 MG/M?
     Route: 065
     Dates: start: 20170727
  4. BLINDED BIBF 1120 [Suspect]
     Active Substance: NINTEDANIB
     Route: 048
     Dates: end: 20171201
  5. CISPLATIN. [Concomitant]
     Active Substance: CISPLATIN
     Indication: PLEURAL MESOTHELIOMA MALIGNANT
     Dosage: 75 MG/M?
     Route: 065
     Dates: start: 20170427
  6. CISPLATIN. [Concomitant]
     Active Substance: CISPLATIN
     Dosage: 56.25 MG/M?
     Route: 065
     Dates: start: 20170727
  7. CISPLATIN. [Concomitant]
     Active Substance: CISPLATIN
     Dosage: 56.25 MG/M?
     Route: 065
     Dates: start: 20170824
  8. PEMETREXED. [Concomitant]
     Active Substance: PEMETREXED
     Indication: PLEURAL MESOTHELIOMA MALIGNANT
     Dosage: 500 MG/M?
     Route: 065
     Dates: start: 20170427
  9. PEMETREXED. [Concomitant]
     Active Substance: PEMETREXED
     Dosage: 375 MG/M?
     Route: 065
     Dates: start: 20170824
  10. BLINDED BIBF 1120 [Suspect]
     Active Substance: NINTEDANIB
     Indication: PLEURAL MESOTHELIOMA MALIGNANT
     Route: 048
     Dates: start: 20170428, end: 20170720
  11. PEMETREXED. [Concomitant]
     Active Substance: PEMETREXED
     Dosage: 375 MG/M?
     Route: 065
     Dates: start: 20170608
  12. CISPLATIN. [Concomitant]
     Active Substance: CISPLATIN
     Dosage: 56.25 MG/M
     Route: 065
     Dates: start: 20170706
  13. PEMETREXED. [Concomitant]
     Active Substance: PEMETREXED
     Dosage: 375 MG/M?
     Route: 065
     Dates: end: 20170706
  14. PEMETREXED. [Concomitant]
     Active Substance: PEMETREXED
     Dosage: 500 MG/M?
     Route: 065
     Dates: start: 20170518

REACTIONS (4)
  - Pulmonary embolism [Recovered/Resolved]
  - Blood creatinine increased [Recovered/Resolved]
  - Hypoacusis [Not Recovered/Not Resolved]
  - Diarrhoea [Recovered/Resolved]

NARRATIVE: CASE EVENT DATE: 20170720
